FAERS Safety Report 8564460-7 (Version None)
Quarter: 2012Q3

REPORT INFORMATION
  Report Type: 
  Country: None (occurrence: None)
  Receive Date: 20120803
  Receipt Date: 20120723
  Transmission Date: 20120928
  Serious: Yes (Hospitalization)
  Sender: FDA-Public Use
  Company Number: CN-NOVOPROD-356628

PATIENT
  Sex: Female
  Weight: 56 kg

DRUGS (2)
  1. NOVORAPID [Suspect]
     Indication: TYPE 2 DIABETES MELLITUS
     Dosage: 8U IN THE MORNING AND 8U IN THE EVENING
  2. NOVORAPID [Suspect]
     Dosage: 8U IN THE MORNING, 4U AT NOON AND 4U IN THE EVENING

REACTIONS (15)
  - MITRAL VALVE INCOMPETENCE [None]
  - ELECTROLYTE IMBALANCE [None]
  - RENAL FAILURE [None]
  - CARDIAC FAILURE [None]
  - CATARACT [None]
  - BUNDLE BRANCH BLOCK RIGHT [None]
  - CHOLECYSTITIS [None]
  - URINARY TRACT INFECTION [None]
  - DIABETIC NEPHROPATHY [None]
  - CORONARY ARTERY DISEASE [None]
  - DIABETIC RETINOPATHY [None]
  - NEPHROGENIC ANAEMIA [None]
  - RENAL HYPERTENSION [None]
  - DIABETIC NEUROPATHY [None]
  - HYPERLIPIDAEMIA [None]
